FAERS Safety Report 8018564-8 (Version None)
Quarter: 2012Q1

REPORT INFORMATION
  Report Type: 
  Country: None (occurrence: None)
  Receive Date: 20120103
  Receipt Date: 20111228
  Transmission Date: 20120608
  Serious: Yes (Hospitalization, Other)
  Sender: FDA-Public Use
  Company Number: US-PFIZER INC-2011292065

PATIENT
  Sex: Male

DRUGS (1)
  1. SUTENT [Suspect]
     Indication: RENAL CANCER
     Dosage: 50 MG, UNK
     Dates: start: 20111108

REACTIONS (8)
  - TREMOR [None]
  - COUGH [None]
  - RETCHING [None]
  - DYSPNOEA [None]
  - HAEMORRHAGE [None]
  - DRUG INTOLERANCE [None]
  - ASTHENIA [None]
  - ABASIA [None]
